FAERS Safety Report 22683952 (Version 3)
Quarter: 2023Q4

REPORT INFORMATION
  Report Type: Report from Study
  Country: US (occurrence: US)
  Receive Date: 20230708
  Receipt Date: 20231114
  Transmission Date: 20240110
  Serious: No
  Sender: FDA-Public Use
  Company Number: US-002147023-NVSC2023US151750

PATIENT
  Age: 84 Year
  Sex: Female

DRUGS (2)
  1. LEQVIO [Suspect]
     Active Substance: INCLISIRAN SODIUM
     Indication: Product used for unknown indication
     Dosage: UNK
     Route: 065
  2. LEQVIO [Suspect]
     Active Substance: INCLISIRAN SODIUM
     Dosage: UNK
     Route: 058
     Dates: start: 202307

REACTIONS (7)
  - Headache [Recovering/Resolving]
  - Arthralgia [Recovering/Resolving]
  - Gastrooesophageal reflux disease [Recovered/Resolved]
  - Pain [Unknown]
  - Arthralgia [Recovered/Resolved]
  - Injection site pain [Recovered/Resolved]
  - Injection site pain [Recovered/Resolved]

NARRATIVE: CASE EVENT DATE: 20230701
